FAERS Safety Report 12252387 (Version 1)
Quarter: 2016Q2

REPORT INFORMATION
  Report Type: Spontaneous
  Country: US (occurrence: None)
  Receive Date: 20160408
  Receipt Date: 20160408
  Transmission Date: 20160815
  Serious: Yes (Hospitalization)
  Sender: FDA-Public Use
  Company Number: None

PATIENT
  Age: 65 Year
  Sex: Male

DRUGS (24)
  1. POT CL MICRO [Concomitant]
  2. JANUVIA [Concomitant]
     Active Substance: SITAGLIPTIN PHOSPHATE
  3. DIAZEPAM. [Concomitant]
     Active Substance: DIAZEPAM
  4. INLYTA [Suspect]
     Active Substance: AXITINIB
     Route: 048
  5. NEO/POLY/DEX [Concomitant]
     Active Substance: DEXAMETHASONE\NEOMYCIN\POLYMYXIN B SULFATE
  6. OXYCODONE [Concomitant]
     Active Substance: OXYCODONE
  7. AMOXICILLIN. [Concomitant]
     Active Substance: AMOXICILLIN
  8. ALPROZOLAM [Concomitant]
     Active Substance: ALPRAZOLAM
  9. PAROXETINE. [Concomitant]
     Active Substance: PAROXETINE
  10. CIALIS [Concomitant]
     Active Substance: TADALAFIL
  11. PROCHLORPER [Concomitant]
  12. TEMAZEPAM. [Concomitant]
     Active Substance: TEMAZEPAM
  13. ZOLPIDEM [Concomitant]
     Active Substance: ZOLPIDEM\ZOLPIDEM TARTRATE
  14. GLIPIZIDE. [Concomitant]
     Active Substance: GLIPIZIDE
  15. NIFEDIPINE. [Concomitant]
     Active Substance: NIFEDIPINE
  16. HYDROCHLOROT [Concomitant]
     Active Substance: HYDROCHLOROTHIAZIDE
  17. VALSARTAN. [Concomitant]
     Active Substance: VALSARTAN
  18. METOPROLOL TARTRATE. [Concomitant]
     Active Substance: METOPROLOL TARTRATE
  19. ACCU-CHEK [Concomitant]
  20. INLYTA [Suspect]
     Active Substance: AXITINIB
     Indication: RENAL CANCER
     Dates: start: 20150820
  21. PANTOPRAZOLE [Concomitant]
     Active Substance: PANTOPRAZOLE SODIUM
  22. LOSARTAN. [Concomitant]
     Active Substance: LOSARTAN
  23. FENTANYL. [Concomitant]
     Active Substance: FENTANYL
  24. LORAZEPAM. [Concomitant]
     Active Substance: LORAZEPAM

REACTIONS (2)
  - Therapy cessation [None]
  - Pancreatitis acute [None]

NARRATIVE: CASE EVENT DATE: 20160325
